FAERS Safety Report 22093563 (Version 2)
Quarter: 2023Q2

REPORT INFORMATION
  Report Type: Spontaneous
  Country: CN (occurrence: CN)
  Receive Date: 20230314
  Receipt Date: 20230425
  Transmission Date: 20230721
  Serious: Yes (Other)
  Sender: FDA-Public Use
  Company Number: CN-BAYER-2023A029155

PATIENT
  Age: 41 Year
  Sex: Male

DRUGS (9)
  1. NEXAVAR [Suspect]
     Active Substance: SORAFENIB
     Indication: Hepatic cancer stage III
     Dosage: 800 MG, QD
     Route: 048
     Dates: start: 201904
  2. STIVARGA [Suspect]
     Active Substance: REGORAFENIB
     Indication: Hepatic cancer stage III
     Dosage: 80 MG, QD
     Route: 048
     Dates: start: 202203
  3. RALTITREXED [Concomitant]
     Active Substance: RALTITREXED
     Indication: Hepatic cancer stage III
     Dosage: 4 MG, ONCE
     Route: 013
     Dates: start: 20190404, end: 20190404
  4. RALTITREXED [Concomitant]
     Active Substance: RALTITREXED
     Indication: Hepatic cancer stage III
     Dosage: 2 MG, ONCE
     Route: 013
     Dates: start: 20190507, end: 20190507
  5. RALTITREXED [Concomitant]
     Active Substance: RALTITREXED
     Indication: Hepatic cancer stage III
     Dosage: 2 MG, ONCE
     Route: 050
     Dates: start: 20190507, end: 20190507
  6. LOBAPLATIN [Concomitant]
     Active Substance: LOBAPLATIN
     Indication: Hepatic cancer stage III
     Dosage: 50 MG, ONCE
     Route: 050
     Dates: start: 20190404, end: 20190404
  7. LOBAPLATIN [Concomitant]
     Active Substance: LOBAPLATIN
     Indication: Hepatic cancer stage III
     Dosage: 50 MG, ONCE
     Route: 013
     Dates: start: 20190507, end: 20190507
  8. LIPIODOL [Concomitant]
     Active Substance: ETHIODIZED OIL
     Indication: Hepatic cancer stage III
     Dosage: 17 ML, ONCE
     Dates: start: 20190404, end: 20190404
  9. LIPIODOL [Concomitant]
     Active Substance: ETHIODIZED OIL
     Indication: Hepatic cancer stage III
     Dosage: 10 ML, ONCE
     Dates: start: 20190507, end: 20190507

REACTIONS (2)
  - Hepatic cancer stage III [Recovering/Resolving]
  - Off label use [None]

NARRATIVE: CASE EVENT DATE: 20220301
